FAERS Safety Report 12626140 (Version 1)
Quarter: 2016Q3

REPORT INFORMATION
  Report Type: Spontaneous
  Country: US (occurrence: US)
  Receive Date: 20160805
  Receipt Date: 20160805
  Transmission Date: 20161109
  Serious: Yes (Other)
  Sender: FDA-Public Use
  Company Number: US-ARBOR PHARMACEUTICALS, LLC-US-2016ARB000506

PATIENT
  Age: 56 Year
  Sex: Male

DRUGS (2)
  1. SIMVASTATIN. [Concomitant]
     Active Substance: SIMVASTATIN
     Indication: PRODUCT USED FOR UNKNOWN INDICATION
     Dosage: UNK
  2. CIPROFLOXACIN\FLUOCINOLONE ACETONIDE [Suspect]
     Active Substance: CIPROFLOXACIN\FLUOCINOLONE ACETONIDE
     Indication: URINARY TRACT INFECTION
     Dosage: UNK

REACTIONS (12)
  - Thrombotic thrombocytopenic purpura [Recovered/Resolved]
  - Asthenia [Unknown]
  - Blood creatine phosphokinase increased [Recovered/Resolved]
  - Blood lactate dehydrogenase [Recovered/Resolved]
  - Platelet count decreased [Recovered/Resolved]
  - ADAMTS13 activity decreased [Recovered/Resolved]
  - Blood creatinine increased [Recovered/Resolved]
  - Schistocytosis [Recovered/Resolved]
  - Rhabdomyolysis [Recovered/Resolved]
  - Seizure [Unknown]
  - Myoglobin urine present [Recovered/Resolved]
  - Haemolysis [Recovered/Resolved]
